FAERS Safety Report 7472181-7 (Version None)
Quarter: 2011Q2

REPORT INFORMATION
  Report Type: 
  Country: None (occurrence: None)
  Receive Date: 20110511
  Receipt Date: 20110221
  Transmission Date: 20111010
  Serious: No
  Sender: FDA-Public Use
  Company Number: A0915385A

PATIENT
  Sex: Female

DRUGS (2)
  1. TYKERB [Suspect]
     Dosage: 1250MG PER DAY
     Route: 048
     Dates: start: 20110203, end: 20110310
  2. XELODA [Suspect]
     Route: 065

REACTIONS (9)
  - NECK PAIN [None]
  - DECREASED APPETITE [None]
  - NAUSEA [None]
  - ABDOMINAL PAIN UPPER [None]
  - ADVERSE EVENT [None]
  - VOMITING [None]
  - DIARRHOEA [None]
  - DISEASE PROGRESSION [None]
  - BACK PAIN [None]
